FAERS Safety Report 5361238-2 (Version None)
Quarter: 2007Q2

REPORT INFORMATION
  Report Type: 
  Country: None (occurrence: None)
  Receive Date: 20070614
  Receipt Date: 20070605
  Transmission Date: 20071010
  Serious: Yes (Other)
  Sender: FDA-Public Use
  Company Number: B0474758A

PATIENT
  Sex: Male

DRUGS (3)
  1. LAMIVUDINE (GENERIC) (LAMIVUDINE) [Suspect]
     Indication: HIV INFECTION
     Dates: start: 20050101
  2. ZIDOVUDINE [Suspect]
     Indication: HIV INFECTION
     Dates: start: 20050101
  3. NEVIRAPINE [Suspect]
     Indication: HIV INFECTION
     Dates: start: 20050101

REACTIONS (8)
  - AGITATION [None]
  - CEREBRAL TOXOPLASMOSIS [None]
  - COORDINATION ABNORMAL [None]
  - DISORIENTATION [None]
  - DYSARTHRIA [None]
  - IMMUNE RECONSTITUTION SYNDROME [None]
  - INTRACRANIAL PRESSURE INCREASED [None]
  - SKIN LESION [None]
